FAERS Safety Report 14190403 (Version 3)
Quarter: 2017Q4

REPORT INFORMATION
  Report Type: Report from Study
  Country: US (occurrence: US)
  Receive Date: 20171115
  Receipt Date: 20171220
  Transmission Date: 20180321
  Serious: Yes (Other)
  Sender: FDA-Public Use
  Company Number: US-AMGEN-USASL2017169006

PATIENT
  Age: 47 Year
  Sex: Female

DRUGS (1)
  1. REPATHA [Suspect]
     Active Substance: EVOLOCUMAB
     Indication: BLOOD CHOLESTEROL INCREASED
     Dosage: 140 MG, Q2WK
     Route: 065
     Dates: start: 20170927

REACTIONS (7)
  - Oropharyngeal blistering [Not Recovered/Not Resolved]
  - Hypersensitivity [Unknown]
  - Injection site bruising [Unknown]
  - Gingival swelling [Unknown]
  - Oropharyngeal pain [Unknown]
  - Oral mucosal blistering [Unknown]
  - Oedema mucosal [Unknown]

NARRATIVE: CASE EVENT DATE: 2017
